FAERS Safety Report 26144649 (Version 1)
Quarter: 2025Q4

REPORT INFORMATION
  Report Type: Spontaneous
  Country: US (occurrence: US)
  Receive Date: 20251211
  Receipt Date: 20251211
  Transmission Date: 20260117
  Serious: No
  Sender: CELLTRION
  Company Number: US-CELLTRION INC.-2025US002649

PATIENT

DRUGS (1)
  1. TRUXIMA [Suspect]
     Active Substance: RITUXIMAB-ABBS
     Indication: Glomerulonephritis membranous
     Dosage: PRESCRIBED 1000 MG ONCE, THEN ANOTHER 1000 MG IN 2 WEEKS, THEN 1000 MG EVERY 6 MONTHS

REACTIONS (1)
  - Intentional product use issue [Unknown]
